FAERS Safety Report 26066033 (Version 2)
Quarter: 2025Q4

REPORT INFORMATION
  Report Type: Spontaneous
  Country: US (occurrence: US)
  Receive Date: 20251119
  Receipt Date: 20251205
  Transmission Date: 20260118
  Serious: No
  Sender: ELI LILLY AND COMPANY
  Company Number: US-ELI_LILLY_AND_COMPANY-US202511020738

PATIENT
  Age: 45 Year
  Sex: Female

DRUGS (3)
  1. ZEPBOUND [Suspect]
     Active Substance: TIRZEPATIDE
     Indication: Weight control
     Dosage: UNK UNK, UNKNOWN
     Route: 058
     Dates: start: 20250702
  2. ZEPBOUND [Suspect]
     Active Substance: TIRZEPATIDE
     Indication: Lipoedema
     Dosage: UNK UNK, UNKNOWN (INCREASED DOSE)
     Route: 058
  3. ZEPBOUND [Suspect]
     Active Substance: TIRZEPATIDE
     Indication: Inflammation

REACTIONS (1)
  - Throat tightness [Unknown]
